FAERS Safety Report 26000704 (Version 1)
Quarter: 2025Q4

REPORT INFORMATION
  Report Type: Spontaneous
  Country: JP (occurrence: JP)
  Receive Date: 20251105
  Receipt Date: 20251105
  Transmission Date: 20260118
  Serious: Yes (Other)
  Sender: BAYER HEALTHCARE PHARMACEUTICALS INC.
  Company Number: JP-BAYER-2025A145470

PATIENT
  Age: 61 Year
  Sex: Male

DRUGS (2)
  1. STIVARGA [Suspect]
     Active Substance: REGORAFENIB MONOHYDRATE
     Dosage: UNK
     Route: 048
     Dates: start: 20250410
  2. STIVARGA [Suspect]
     Active Substance: REGORAFENIB MONOHYDRATE
     Dosage: UNK
     Dates: start: 20250605

REACTIONS (4)
  - Blood lactate dehydrogenase increased [None]
  - Malignant neoplasm progression [None]
  - Metastases to lung [None]
  - Metastases to liver [None]

NARRATIVE: CASE EVENT DATE: 20250101
